FAERS Safety Report 10510360 (Version 1)
Quarter: 2014Q4

REPORT INFORMATION
  Report Type: Spontaneous
  Country: US (occurrence: None)
  Receive Date: 20141008
  Receipt Date: 20141008
  Transmission Date: 20150528
  Serious: Yes (Other)
  Sender: FDA-Public Use
  Company Number: 2014PAC00040

PATIENT
  Age: 47 Year
  Sex: Female
  Weight: 72.6 kg

DRUGS (12)
  1. FLUTICASONE [Concomitant]
     Active Substance: FLUTICASONE\FLUTICASONE PROPIONATE
  2. ALVESCO [Concomitant]
     Active Substance: CICLESONIDE
  3. CROMOLYN SODIUM. [Suspect]
     Active Substance: CROMOLYN SODIUM
     Indication: INFLAMMATION
     Dosage: 4X/DAY
     Route: 048
     Dates: start: 201404, end: 201405
  4. ATIVAN [Concomitant]
     Active Substance: LORAZEPAM
  5. CHLOR-TRIMETON [Concomitant]
     Active Substance: CHLORPHENIRAMINE MALEATE
  6. VYVANSE [Concomitant]
     Active Substance: LISDEXAMFETAMINE DIMESYLATE
  7. IMMUNOGLOBULIN INJECTIONS [Concomitant]
  8. VITAMINS [Suspect]
     Active Substance: VITAMINS
  9. BUSPAR [Concomitant]
     Active Substance: BUSPIRONE HYDROCHLORIDE
  10. LANSOPRAZOLE. [Concomitant]
     Active Substance: LANSOPRAZOLE
  11. ALLERGY MEDICATION [Concomitant]
     Active Substance: DIPHENHYDRAMINE HYDROCHLORIDE
  12. EFFEXOR [Concomitant]
     Active Substance: VENLAFAXINE HYDROCHLORIDE

REACTIONS (16)
  - Asthma [None]
  - Decreased appetite [None]
  - Dyspnoea [None]
  - Abdominal pain upper [None]
  - Depression [None]
  - Abdominal discomfort [None]
  - Urticaria [None]
  - Anxiety [None]
  - Nervousness [None]
  - Dehydration [None]
  - Flushing [None]
  - Pruritus [None]
  - Joint stiffness [None]
  - Nausea [None]
  - Migraine [None]
  - Infection susceptibility increased [None]

NARRATIVE: CASE EVENT DATE: 201405
